FAERS Safety Report 23862140 (Version 1)
Quarter: 2024Q2

REPORT INFORMATION
  Report Type: Spontaneous
  Country: US (occurrence: None)
  Receive Date: 20240515
  Receipt Date: 20240515
  Transmission Date: 20240715
  Serious: Yes (Death, Other)
  Sender: FDA-Public Use
  Company Number: None

PATIENT
  Age: 57 Year
  Sex: Male

DRUGS (20)
  1. TADALAFIL [Suspect]
     Active Substance: TADALAFIL
     Indication: Pulmonary arterial hypertension
     Dosage: FREQUENCY : DAILY;?
     Route: 048
     Dates: start: 20191220, end: 20240508
  2. AMBRISENTAN [Suspect]
     Active Substance: AMBRISENTAN
  3. FENTANYL [Concomitant]
     Active Substance: FENTANYL\FENTANYL CITRATE
  4. MORPHINE [Concomitant]
     Active Substance: MORPHINE
  5. TYLENOL [Concomitant]
  6. BISACODYL [Concomitant]
     Active Substance: BISACODYL
  7. GABAPENTIN [Concomitant]
  8. LISINOPRIL [Concomitant]
  9. MELATONIN [Concomitant]
  10. NARCAN [Concomitant]
  11. ONDANSETRON [Concomitant]
  12. OXYCODONE [Concomitant]
     Active Substance: OXYCODONE\OXYCODONE HYDROCHLORIDE
  13. pantroprazole [Concomitant]
  14. MIRALAX [Concomitant]
     Active Substance: POLYETHYLENE GLYCOL 3350
  15. SENNA [Concomitant]
     Active Substance: SENNA LEAF\SENNOSIDES\SENNOSIDES A AND B
  16. LORAZEPAM [Concomitant]
     Active Substance: LORAZEPAM
  17. PHENOBARBITAL [Concomitant]
  18. atropine opht drop [Concomitant]
  19. morphine concentate [Concomitant]
  20. HALDOL [Concomitant]
     Active Substance: HALOPERIDOL

REACTIONS (2)
  - Pancreatic carcinoma metastatic [None]
  - Hospice care [None]

NARRATIVE: CASE EVENT DATE: 20240508
